FAERS Safety Report 6864663-3 (Version None)
Quarter: 2010Q3

REPORT INFORMATION
  Report Type: 
  Country: None (occurrence: None)
  Receive Date: 20100721
  Receipt Date: 20080619
  Transmission Date: 20110219
  Serious: No
  Sender: FDA-Public Use
  Company Number: US-PFIZER INC-2008027379

PATIENT
  Sex: Female
  Weight: 37.65 kg

DRUGS (7)
  1. CHANTIX [Suspect]
     Indication: SMOKING CESSATION THERAPY
     Route: 048
     Dates: start: 20061206, end: 20080401
  2. PREDNISONE [Suspect]
     Indication: SYSTEMIC LUPUS ERYTHEMATOSUS
  3. PLAQUENIL [Concomitant]
  4. DILANTIN [Concomitant]
     Indication: EPILEPSY
  5. PHENOBARBITAL [Concomitant]
     Indication: EPILEPSY
  6. TRAMADOL [Concomitant]
     Indication: PAIN
  7. LORTAB [Concomitant]

REACTIONS (16)
  - AGITATION [None]
  - ALCOHOLISM [None]
  - ANGER [None]
  - DEPRESSION [None]
  - DRUG ABUSER [None]
  - DRUG INEFFECTIVE [None]
  - FEELING ABNORMAL [None]
  - FOOD CRAVING [None]
  - HEADACHE [None]
  - HYPERPHAGIA [None]
  - HYPERSENSITIVITY [None]
  - INSOMNIA [None]
  - IRRITABILITY [None]
  - MOOD SWINGS [None]
  - RESTLESSNESS [None]
  - WITHDRAWAL SYNDROME [None]
